FAERS Safety Report 7387008-1 (Version None)
Quarter: 2011Q1

REPORT INFORMATION
  Report Type: 
  Country: None (occurrence: None)
  Receive Date: 20110331
  Receipt Date: 20110325
  Transmission Date: 20110831
  Serious: Yes (Other)
  Sender: FDA-Public Use
  Company Number: US-PFIZER INC-2011044873

PATIENT
  Sex: Female
  Weight: 61 kg

DRUGS (1)
  1. SUTENT [Suspect]
     Indication: GASTRIC NEOPLASM
     Dosage: 37 MG, UNK
     Route: 048
     Dates: start: 20100101, end: 20110201

REACTIONS (2)
  - THYROID DISORDER [None]
  - HYPERTENSION [None]
